FAERS Safety Report 16937662 (Version 1)
Quarter: 2019Q4

REPORT INFORMATION
  Report Type: Other
  Country: FR (occurrence: FR)
  Receive Date: 20191018
  Receipt Date: 20191018
  Transmission Date: 20200122
  Serious: Yes (Hospitalization, Other)
  Sender: FDA-Public Use
  Company Number: FR-VALIDUS PHARMACEUTICALS LLC-FR-2019VAL000615

PATIENT

DRUGS (3)
  1. ROVAMYCINE                         /00074401/ [Suspect]
     Active Substance: SPIRAMYCIN
     Indication: SEPTIC SHOCK
     Dosage: 3000000 IU, Q8H
     Route: 042
     Dates: start: 20190826, end: 20190829
  2. CEFOTAXIME SODIUM [Suspect]
     Active Substance: CEFOTAXIME SODIUM
     Indication: SEPTIC SHOCK
     Dosage: 1 G, Q8H
     Route: 042
     Dates: start: 20190826, end: 20190828
  3. NEGABAN [Suspect]
     Active Substance: TEMOCILLIN
     Indication: SEPTIC SHOCK
     Dosage: 2 G, QD
     Route: 042
     Dates: start: 20190828, end: 20190831

REACTIONS (1)
  - Hepatocellular injury [Not Recovered/Not Resolved]

NARRATIVE: CASE EVENT DATE: 20190829
